FAERS Safety Report 10149489 (Version 1)
Quarter: 2014Q2

REPORT INFORMATION
  Report Type: Spontaneous
  Country: GB (occurrence: None)
  Receive Date: 20140430
  Receipt Date: 20140430
  Transmission Date: 20141212
  Serious: Yes (Hospitalization)
  Sender: FDA-Public Use
  Company Number: AUR-APL-2014-05105

PATIENT
  Age: 41 Year
  Sex: Male

DRUGS (1)
  1. AMOXICILLIN +CLAVULINIC ACID [Suspect]
     Indication: INFECTION
     Dosage: 3 DOSAGE FORMS (1 DOSAGE FORMS,3 IN 1 D)
     Route: 048
     Dates: start: 20140409, end: 20140409

REACTIONS (1)
  - Hypersensitivity [None]
